FAERS Safety Report 5532291-8 (Version None)
Quarter: 2007Q4

REPORT INFORMATION
  Report Type: 
  Country: None (occurrence: None)
  Receive Date: 20071203
  Receipt Date: 20071120
  Transmission Date: 20080405
  Serious: Yes (Hospitalization)
  Sender: FDA-Public Use
  Company Number: US-ELI_LILLY_AND_COMPANY-US200710005702

PATIENT
  Age: 78 Year
  Sex: Female
  Weight: 73.923 kg

DRUGS (10)
  1. FORTEO [Suspect]
     Indication: OSTEOPOROSIS
     Dosage: 20 UG, DAILY (1/D)
     Dates: start: 20071022
  2. PLAVIX [Concomitant]
  3. TOPROL-XL [Concomitant]
  4. SIMVASTATIN [Concomitant]
  5. ASPIRIN [Concomitant]
  6. LISINOPRIL [Concomitant]
  7. ACTONEL [Concomitant]
  8. LYRICA [Concomitant]
  9. DARVOCET [Concomitant]
     Dosage: DARVOCET-N 100
  10. PREVACID [Concomitant]

REACTIONS (6)
  - HYPERCALCAEMIA [None]
  - LOBAR PNEUMONIA [None]
  - MENTAL STATUS CHANGES [None]
  - ROAD TRAFFIC ACCIDENT [None]
  - SOMNOLENCE [None]
  - URINARY INCONTINENCE [None]
